FAERS Safety Report 7337459-6 (Version None)
Quarter: 2011Q1

REPORT INFORMATION
  Report Type: 
  Country: None (occurrence: None)
  Receive Date: 20110308
  Receipt Date: 20110225
  Transmission Date: 20110831
  Serious: Yes (Other)
  Sender: FDA-Public Use
  Company Number: BR-US-EMD SERONO, INC.-7044939

PATIENT
  Sex: Male

DRUGS (6)
  1. REBIF [Suspect]
     Indication: RELAPSING-REMITTING MULTIPLE SCLEROSIS
     Dates: start: 20030501
  2. PASSIFLORA [Concomitant]
  3. MUVINLAX [Concomitant]
  4. MANTIDAN [Concomitant]
  5. CARALLUMA FIMBRIATA [Concomitant]
  6. GARCINIA [Concomitant]

REACTIONS (2)
  - WOUND [None]
  - WOUND ABSCESS [None]
